FAERS Safety Report 7049391-6 (Version None)
Quarter: 2010Q4

REPORT INFORMATION
  Report Type: 
  Country: None (occurrence: None)
  Receive Date: 20101018
  Receipt Date: 20101004
  Transmission Date: 20110411
  Serious: Yes (Death)
  Sender: FDA-Public Use
  Company Number: JP-ROCHE-732321

PATIENT
  Age: 70 Year

DRUGS (2)
  1. PEGASYS [Suspect]
     Route: 058
  2. COPEGUS [Suspect]
     Dosage: NOTE: DOSAGE IS UNCERTAIN.
     Route: 048

REACTIONS (1)
  - SUBARACHNOID HAEMORRHAGE [None]
